FAERS Safety Report 11529636 (Version 1)
Quarter: 2015Q3

REPORT INFORMATION
  Report Type: Spontaneous
  Country: US (occurrence: None)
  Receive Date: 20150918
  Receipt Date: 20150918
  Transmission Date: 20151125
  Serious: Yes (Disabling)
  Sender: FDA-Public Use
  Company Number: None

PATIENT
  Age: 69 Year
  Sex: Female
  Weight: 95.26 kg

DRUGS (25)
  1. VITAMIN B12 [Concomitant]
     Active Substance: CYANOCOBALAMIN
  2. PROBIOTIC [Concomitant]
     Active Substance: PROBIOTICS NOS
  3. JOINT SUPPORT [Concomitant]
  4. CLONIDINE HCL [Concomitant]
     Active Substance: CLONIDINE HYDROCHLORIDE
  5. AMLODIPINE BESYLATE. [Concomitant]
     Active Substance: AMLODIPINE BESYLATE
  6. STOOL SOFTENER [Concomitant]
     Active Substance: DOCUSATE CALCIUM
  7. MUCUS ER [Concomitant]
     Active Substance: GUAIFENESIN
  8. FUROSEMIDE. [Concomitant]
     Active Substance: FUROSEMIDE
  9. ONE A DAY [Concomitant]
  10. ZINC [Concomitant]
     Active Substance: ZINC\ZINC CHLORIDE
  11. BACLOFEN. [Concomitant]
     Active Substance: BACLOFEN
  12. ROPINIROLE HCL [Concomitant]
     Active Substance: ROPINIROLE HYDROCHLORIDE
  13. HAIR, SKIN, NAILS [Concomitant]
  14. ACETAMINOPHEN. [Concomitant]
     Active Substance: ACETAMINOPHEN
  15. LISINOPRIL. [Concomitant]
     Active Substance: LISINOPRIL
  16. VITAMIN D3 [Concomitant]
     Active Substance: CHOLECALCIFEROL
  17. FOLIC ACID. [Concomitant]
     Active Substance: FOLIC ACID
  18. PROTONIX [Concomitant]
     Active Substance: PANTOPRAZOLE SODIUM
  19. GABAPENTIN. [Concomitant]
     Active Substance: GABAPENTIN
  20. MAGNESIUM [Concomitant]
     Active Substance: MAGNESIUM
  21. CIPROFLOXACIN HCL 250 MG TAB. [Suspect]
     Active Substance: CIPROFLOXACIN HYDROCHLORIDE
     Indication: URINARY TRACT INFECTION
     Dosage: BY MOUTH, 12 HRS (PILLS)
     Dates: start: 20150415, end: 20150416
  22. OXYBUTYNIN [Concomitant]
     Active Substance: OXYBUTYNIN
  23. POTASSIUM [Concomitant]
     Active Substance: POTASSIUM
  24. IBUPROFEN. [Concomitant]
     Active Substance: IBUPROFEN
  25. GINGER ROOT [Concomitant]

REACTIONS (6)
  - Muscle spasms [None]
  - Impaired work ability [None]
  - Pain [None]
  - Narcolepsy [None]
  - Impaired driving ability [None]
  - Gait disturbance [None]

NARRATIVE: CASE EVENT DATE: 20150416
